FAERS Safety Report 17427025 (Version 1)
Quarter: 2020Q1

REPORT INFORMATION
  Report Type: Spontaneous
  Country: RO (occurrence: RO)
  Receive Date: 20200217
  Receipt Date: 20200217
  Transmission Date: 20200409
  Serious: Yes (Death, Other)
  Sender: FDA-Public Use
  Company Number: RO-AMGEN-ROUSP2020024524

PATIENT

DRUGS (3)
  1. KYPROLIS [Suspect]
     Active Substance: CARFILZOMIB
     Indication: PRODUCT USED FOR UNKNOWN INDICATION
     Dosage: UNK
     Route: 065
  2. DEXAMETHASONE. [Concomitant]
     Active Substance: DEXAMETHASONE
     Dosage: UNK
  3. LENALIDOMIDE [Concomitant]
     Active Substance: LENALIDOMIDE
     Dosage: UNK

REACTIONS (8)
  - Disease progression [Unknown]
  - Therapy partial responder [Unknown]
  - Intestinal obstruction [Fatal]
  - Respiratory failure [Fatal]
  - Pulmonary embolism [Unknown]
  - Plasmacytoma [Fatal]
  - Lung neoplasm malignant [Fatal]
  - Sepsis [Fatal]
